FAERS Safety Report 8129083-2 (Version None)
Quarter: 2012Q1

REPORT INFORMATION
  Report Type: 
  Country: None (occurrence: None)
  Receive Date: 20120210
  Receipt Date: 20110915
  Transmission Date: 20120608
  Serious: No
  Sender: FDA-Public Use
  Company Number: US-BRISTOL-MYERS SQUIBB COMPANY-16062952

PATIENT
  Age: 28 Year
  Sex: Female
  Weight: 63 kg

DRUGS (1)
  1. ORENCIA [Suspect]
     Dosage: 3VIALS,5TH INFUSION:14SEP2011
     Route: 042
     Dates: start: 20110621

REACTIONS (1)
  - INCORRECT DOSE ADMINISTERED [None]
